FAERS Safety Report 5326265-X (Version None)
Quarter: 2007Q2

REPORT INFORMATION
  Report Type: 
  Country: None (occurrence: None)
  Receive Date: 20070516
  Receipt Date: 20070510
  Transmission Date: 20071010
  Serious: Yes (Death, Life-Threatening)
  Sender: FDA-Public Use
  Company Number: FR-AVENTIS-200711635FR

PATIENT
  Age: 70 Year
  Sex: Male

DRUGS (2)
  1. LANTUS [Suspect]
     Route: 058
     Dates: start: 20070302
  2. ACTRAPID [Suspect]
     Route: 042
     Dates: start: 20070227, end: 20070302

REACTIONS (1)
  - HYPOGLYCAEMIA [None]
